FAERS Safety Report 5786050-1 (Version None)
Quarter: 2008Q2

REPORT INFORMATION
  Report Type: 
  Country: None (occurrence: None)
  Receive Date: 20080624
  Receipt Date: 20070607
  Transmission Date: 20081010
  Serious: No
  Sender: FDA-Public Use
  Company Number: US-ASTRAZENECA-2007UW13767

PATIENT
  Age: 83 Year
  Sex: Female
  Weight: 63.5 kg

DRUGS (4)
  1. PULMICORT RESPULES [Suspect]
     Indication: ASTHMA
     Dosage: ONCE OR TWICE A DAY
     Route: 055
     Dates: start: 20070401
  2. PULMICORT RESPULES [Suspect]
     Indication: EMPHYSEMA
     Dosage: ONCE OR TWICE A DAY
     Route: 055
     Dates: start: 20070401
  3. DUONEB [Concomitant]
  4. MUCOMYST [Concomitant]

REACTIONS (2)
  - DYSPNOEA [None]
  - THROAT TIGHTNESS [None]
